FAERS Safety Report 20005408 (Version 2)
Quarter: 2021Q4

REPORT INFORMATION
  Report Type: Report from Study
  Country: CA (occurrence: CA)
  Receive Date: 20211028
  Receipt Date: 20211228
  Transmission Date: 20220303
  Serious: Yes (Other)
  Sender: FDA-Public Use
  Company Number: CA-JNJFOC-20211050003

PATIENT
  Age: 12 Year
  Sex: Male
  Weight: 81 kg

DRUGS (1)
  1. REMICADE [Suspect]
     Active Substance: INFLIXIMAB
     Indication: Crohn^s disease
     Route: 042
     Dates: start: 20210519

REACTIONS (3)
  - Choking [Recovering/Resolving]
  - Autism spectrum disorder [Unknown]
  - Oesophagitis [Unknown]

NARRATIVE: CASE EVENT DATE: 20210101
